FAERS Safety Report 18457905 (Version 1)
Quarter: 2020Q4

REPORT INFORMATION
  Report Type: Spontaneous
  Country: IT (occurrence: IT)
  Receive Date: 20201103
  Receipt Date: 20201103
  Transmission Date: 20210114
  Serious: Yes (Other)
  Sender: FDA-Public Use
  Company Number: IT-MYLANLABS-2020M1091252

PATIENT
  Age: 29 Year
  Sex: Male

DRUGS (1)
  1. PREDNISONE. [Suspect]
     Active Substance: PREDNISONE
     Indication: DERMATOMYOSITIS
     Dosage: 100 MILLIGRAM, QD

REACTIONS (3)
  - Germ cell cancer [Recovered/Resolved with Sequelae]
  - Condition aggravated [Unknown]
  - Dermatomyositis [Unknown]
